FAERS Safety Report 7297122-7 (Version None)
Quarter: 2010Q4

REPORT INFORMATION
  Report Type: 
  Country: None (occurrence: None)
  Receive Date: 20101227
  Receipt Date: 20100412
  Transmission Date: 20110411
  Serious: Yes (Hospitalization)
  Sender: FDA-Public Use
  Company Number: WAES 1004USA01630

PATIENT
  Age: 62 Year
  Sex: Male

DRUGS (2)
  1. ZETIA [Suspect]
     Dosage: 40 MG/PO
     Route: 048
     Dates: start: 20100408
  2. ZETIA [Suspect]
     Dosage: 40 MG/PO
     Route: 048
     Dates: start: 20100409

REACTIONS (3)
  - ADVERSE EVENT [None]
  - NO ADVERSE EVENT [None]
  - OVERDOSE [None]
